FAERS Safety Report 20922553 (Version 1)
Quarter: 2022Q2

REPORT INFORMATION
  Report Type: Spontaneous
  Country: JP (occurrence: JP)
  Receive Date: 20220607
  Receipt Date: 20220607
  Transmission Date: 20220721
  Serious: Yes (Other)
  Sender: FDA-Public Use
  Company Number: JP-Teva Takeda Yakuhin-2022-JP-002321J

PATIENT
  Age: 86 Year
  Sex: Female

DRUGS (1)
  1. LANSOPRAZOLE [Suspect]
     Active Substance: LANSOPRAZOLE
     Indication: Gastric ulcer haemorrhage
     Dosage: DOSAGE IS UNKNOWN
     Route: 048

REACTIONS (3)
  - Ileus [Unknown]
  - Vascular graft [Unknown]
  - Product use issue [Unknown]
